FAERS Safety Report 20444419 (Version 6)
Quarter: 2022Q1

REPORT INFORMATION
  Report Type: Report from Study
  Country: CN (occurrence: None)
  Receive Date: 20220208
  Receipt Date: 20220325
  Transmission Date: 20220423
  Serious: Yes (Hospitalization)
  Sender: FDA-Public Use
  Company Number: 2022A052410

PATIENT
  Age: 72 Year
  Sex: Male

DRUGS (16)
  1. DURVALUMAB [Suspect]
     Active Substance: DURVALUMAB
     Indication: Non-small cell lung cancer
     Route: 042
     Dates: start: 20220120, end: 20220120
  2. CARBOPLATIN [Suspect]
     Active Substance: CARBOPLATIN
     Indication: Non-small cell lung cancer
     Dosage: 5 AUC EVERY THREE WEEKS
     Route: 042
     Dates: start: 20220120, end: 20220121
  3. GEMCITABINE [Suspect]
     Active Substance: GEMCITABINE
     Indication: Non-small cell lung cancer
     Dosage: EVERY THREE WEEKS
     Route: 042
     Dates: start: 20220120, end: 20220120
  4. GEMCITABINE [Suspect]
     Active Substance: GEMCITABINE
     Indication: Non-small cell lung cancer
     Dosage: EVERY THREE WEEKS
     Route: 042
     Dates: start: 20220127, end: 20220127
  5. RECOMBINANT HUMAN LNTERLEUKIN-11 FOR INJECTION [Concomitant]
     Indication: Myelosuppression
     Dates: start: 20220129, end: 20220209
  6. PALONOSETRON HYDROCHLORIDE [Concomitant]
     Active Substance: PALONOSETRON HYDROCHLORIDE
     Indication: Nausea
     Dates: start: 20220120, end: 20220128
  7. RANITIDINE HYDROCHLORIDE INJECTION [Concomitant]
     Indication: Protein total
     Dates: start: 20220120, end: 20220128
  8. VITAMIN B6 [Concomitant]
     Active Substance: PYRIDOXINE HYDROCHLORIDE
     Indication: Vitamin supplementation
     Dates: start: 20220120, end: 20220128
  9. ASCORBIC ACID [Concomitant]
     Active Substance: ASCORBIC ACID
     Indication: Vitamin supplementation
     Dates: start: 20220120, end: 20220128
  10. GLYCEROL ENEMA [Concomitant]
     Indication: Constipation
     Dates: start: 20220123, end: 20220123
  11. RECOMBINANT HUMAN GRANULOCYTE COLONY-STIMULATING FACTOR INJECTION [Concomitant]
     Indication: White blood cell count decreased
     Dates: start: 20220125, end: 20220127
  12. RECOMBINANT HUMAN GRANULOCYTE COLONY-STIMULATING FACTOR INJECTION [Concomitant]
     Indication: White blood cell count decreased
     Dates: start: 20220125, end: 20220127
  13. RECOMBINANT HUMAN GRANULOCYTE COLONY-STIMULATING FACTOR INJECTION [Concomitant]
     Indication: White blood cell count decreased
     Dates: start: 20220130, end: 20220131
  14. RECOMBINANT HUMAN GRANULOCYTE COLONY-STIMULATING FACTOR INJECTION [Concomitant]
     Indication: White blood cell count decreased
     Dates: start: 20220130, end: 20220131
  15. RECOMBINANT HUMAN ERYTHROPOIETIN INJECTION(CHO CELL) [Concomitant]
     Indication: Anaemia
     Dates: start: 20220129, end: 20220210
  16. RECOMBINANT HUMAN GRANULOCYTE COLONY STIMULATING FACTOR INJECTION [Concomitant]
     Indication: White blood cell count decreased
     Dates: start: 20220131, end: 20220202

REACTIONS (1)
  - Myelosuppression [Recovered/Resolved]

NARRATIVE: CASE EVENT DATE: 20220125
